FAERS Safety Report 5228582-0 (Version None)
Quarter: 2007Q1

REPORT INFORMATION
  Report Type: 
  Country: None (occurrence: None)
  Receive Date: 20070131
  Receipt Date: 20070131
  Transmission Date: 20070707
  Serious: Yes (Other)
  Sender: FDA-Public Use
  Company Number: None

PATIENT
  Age: 63 Year
  Sex: Male
  Weight: 108.8 kg

DRUGS (1)
  1. VARDENAFIL [Suspect]

REACTIONS (2)
  - DELIRIUM [None]
  - DISORIENTATION [None]
